FAERS Safety Report 9426405 (Version 1)
Quarter: 2013Q3

REPORT INFORMATION
  Report Type: Spontaneous
  Country: FR (occurrence: FR)
  Receive Date: 20130730
  Receipt Date: 20130730
  Transmission Date: 20140515
  Serious: Yes (Hospitalization)
  Sender: FDA-Public Use
  Company Number: FR-B.I. PHARMACEUTICALS,INC./RIDGEFIELD-2013-FF-01933FF

PATIENT
  Sex: Female

DRUGS (5)
  1. PRADAXA [Suspect]
     Indication: ATRIAL FIBRILLATION
     Dosage: 220 MG
     Route: 048
     Dates: start: 201305, end: 201307
  2. CORDARONE [Concomitant]
  3. PRAVASTATIN [Concomitant]
  4. AMLODIPINE [Concomitant]
  5. IRBESARTAN/HYDROCHLOROTHIAZIDE [Concomitant]
     Dosage: 300MG/12.5MG

REACTIONS (2)
  - Pulmonary embolism [Recovered/Resolved]
  - Asthenia [Recovered/Resolved]
